FAERS Safety Report 15331537 (Version 1)
Quarter: 2018Q4

REPORT INFORMATION
  Report Type: Spontaneous
  Country: US (occurrence: US)
  Receive Date: 20180829
  Receipt Date: 20180829
  Transmission Date: 20190204
  Serious: No
  Sender: FDA-Public Use
  Company Number: US-DOVA PHARMACEUTICALS INC.-DOV-000136

PATIENT
  Age: 69 Year
  Sex: Male

DRUGS (3)
  1. NADOLOL. [Concomitant]
     Active Substance: NADOLOL
     Indication: VARICES OESOPHAGEAL
     Dosage: 20 MG, QD
  2. PANTOPRAZOLE [Concomitant]
     Active Substance: PANTOPRAZOLE
     Indication: PEPTIC ULCER
     Dosage: 40 MG, QD
  3. DOPTELET [Suspect]
     Active Substance: AVATROMBOPAG MALEATE
     Indication: PRODUCT USED FOR UNKNOWN INDICATION
     Dosage: 2 DF, QD
     Dates: start: 20180625

REACTIONS (2)
  - Pyrexia [Recovered/Resolved]
  - Oedema peripheral [Recovered/Resolved]

NARRATIVE: CASE EVENT DATE: 20180629
